FAERS Safety Report 8828940 (Version 8)
Quarter: 2020Q2

REPORT INFORMATION
  Report Type: Spontaneous
  Country: US (occurrence: US)
  Receive Date: 20121008
  Receipt Date: 20200519
  Transmission Date: 20200714
  Serious: Yes (Hospitalization, Disabling, Other)
  Sender: FDA-Public Use
  Company Number: US-009507513-1210USA002556

PATIENT
  Sex: Female
  Weight: 82 kg

DRUGS (5)
  1. FOSAMAX [Suspect]
     Active Substance: ALENDRONATE SODIUM
     Indication: PROPHYLAXIS
  2. FOSAMAX [Suspect]
     Active Substance: ALENDRONATE SODIUM
     Indication: OSTEOPOROSIS PROPHYLAXIS
  3. FOSAMAX [Suspect]
     Active Substance: ALENDRONATE SODIUM
     Indication: STRESS FRACTURE
     Dosage: 70 MG, QW
     Route: 048
     Dates: start: 2000, end: 200602
  4. HORMONES (UNSPECIFIED) [Concomitant]
     Active Substance: UNSPECIFIED INGREDIENT
     Indication: PRODUCT USED FOR UNKNOWN INDICATION
     Dosage: UNK
     Dates: start: 1985
  5. PREDNISONE. [Concomitant]
     Active Substance: PREDNISONE
     Indication: RHEUMATOID ARTHRITIS
     Dosage: 5-17 MG QD
     Dates: start: 1997

REACTIONS (61)
  - Back pain [Not Recovered/Not Resolved]
  - Femur fracture [Unknown]
  - Foot fracture [Recovered/Resolved]
  - Sciatica [Recovered/Resolved]
  - Foot fracture [Recovering/Resolving]
  - Hyperlipidaemia [Unknown]
  - Fatigue [Unknown]
  - Weight fluctuation [Unknown]
  - Cold urticaria [Unknown]
  - Arthralgia [Unknown]
  - Intramedullary rod insertion [Recovered/Resolved]
  - Open reduction of fracture [Recovering/Resolving]
  - Internal fixation of fracture [Unknown]
  - Stress fracture [Unknown]
  - Pneumonia [Unknown]
  - Palpitations [Unknown]
  - Drug ineffective [Unknown]
  - Bone graft [Recovering/Resolving]
  - Fracture nonunion [Unknown]
  - Rib fracture [Recovering/Resolving]
  - Bronchitis chronic [Not Recovered/Not Resolved]
  - Fracture nonunion [Recovered/Resolved]
  - Osteoarthritis [Unknown]
  - Depression [Unknown]
  - Musculoskeletal chest pain [Not Recovered/Not Resolved]
  - Dyspepsia [Unknown]
  - Blood cholesterol increased [Unknown]
  - Rib fracture [Unknown]
  - Foot fracture [Unknown]
  - Nasal obstruction [Unknown]
  - Anxiety [Unknown]
  - Menstruation irregular [Unknown]
  - Osteocalcin decreased [Unknown]
  - Asthenia [Unknown]
  - Femur fracture [Recovered/Resolved]
  - Spinal fusion surgery [Unknown]
  - Upper-airway cough syndrome [Unknown]
  - Synovitis [Unknown]
  - Insomnia [Unknown]
  - Osteoarthritis [Unknown]
  - Intramedullary rod insertion [Not Recovered/Not Resolved]
  - Device defective [Unknown]
  - Fall [Unknown]
  - Impaired healing [Unknown]
  - Pleurisy [Unknown]
  - Asthma [Unknown]
  - Bone formation decreased [Unknown]
  - Bone graft [Recovered/Resolved]
  - Atrophy [Unknown]
  - Stress fracture [Unknown]
  - Nasal discomfort [Unknown]
  - Productive cough [Unknown]
  - Wheezing [Unknown]
  - Panic attack [Unknown]
  - Anaemia [Unknown]
  - Skin atrophy [Unknown]
  - Headache [Unknown]
  - Impaired healing [Recovered/Resolved]
  - Muscular weakness [Unknown]
  - N-telopeptide [Unknown]
  - Pain in extremity [Unknown]

NARRATIVE: CASE EVENT DATE: 200002
